APPROVED DRUG PRODUCT: TRAMADOL HYDROCHLORIDE
Active Ingredient: TRAMADOL HYDROCHLORIDE
Strength: 50MG
Dosage Form/Route: TABLET;ORAL
Application: A206706 | Product #001
Applicant: PURACAP LABORATORIES LLC DBA BLU PHARMACEUTICALS
Approved: Jul 2, 2019 | RLD: No | RS: No | Type: DISCN